FAERS Safety Report 15553405 (Version 1)
Quarter: 2018Q4

REPORT INFORMATION
  Report Type: Spontaneous
  Country: FR (occurrence: FR)
  Receive Date: 20181026
  Receipt Date: 20181026
  Transmission Date: 20190205
  Serious: Yes (Congenital Anomaly)
  Sender: FDA-Public Use
  Company Number: FR-TEVA-2018-FR-969130

PATIENT
  Age: 0 Day
  Sex: Female
  Weight: 2.77 kg

DRUGS (9)
  1. METFORMINE (CHLORHYDRATE DE) [Suspect]
     Active Substance: METFORMIN HYDROCHLORIDE
     Indication: TYPE 2 DIABETES MELLITUS
     Dosage: 2000 MILLIGRAM DAILY;
     Route: 064
     Dates: start: 20160914, end: 20170214
  2. INDOCYANINE (VERT D^) [Suspect]
     Active Substance: INDOCYANINE GREEN
     Indication: ANGIOGRAM
     Route: 064
     Dates: start: 201609, end: 201609
  3. TRANDATE [Suspect]
     Active Substance: LABETALOL HYDROCHLORIDE
     Route: 064
     Dates: start: 20170215, end: 20170531
  4. FLUORESCEINE SODIQUE [Suspect]
     Active Substance: FLUORESCEIN SODIUM
     Indication: ANGIOGRAM
     Route: 064
     Dates: start: 201609, end: 201609
  5. AMLODIPINE [Suspect]
     Active Substance: AMLODIPINE BESYLATE
     Indication: HYPERTENSION
     Dosage: 10 MILLIGRAM DAILY;
     Route: 064
     Dates: start: 20160914, end: 20170214
  6. COAPROVEL 300 MG/25 MG, COMPRIM? PELLICUL? [Suspect]
     Active Substance: HYDROCHLOROTHIAZIDE\IRBESARTAN
     Indication: HYPERTENSION
     Dosage: 1 DOSAGE FORMS DAILY;
     Route: 064
     Dates: start: 20160914, end: 20170214
  7. AERIUS (DESLORATADINE) [Suspect]
     Active Substance: DESLORATADINE
     Indication: HYPERSENSITIVITY
     Route: 064
     Dates: start: 20160914, end: 20170531
  8. INSULINE [Concomitant]
     Active Substance: INSULIN NOS
  9. LOXEN 20 MG, COMPRIM? S?CABLE [Suspect]
     Active Substance: NICARDIPINE HYDROCHLORIDE
     Route: 064
     Dates: start: 20170215, end: 20170531

REACTIONS (3)
  - Low birth weight baby [Unknown]
  - Haemangioma congenital [Not Recovered/Not Resolved]
  - Patent ductus arteriosus [Recovered/Resolved]

NARRATIVE: CASE EVENT DATE: 20170531
